FAERS Safety Report 9331936 (Version 1)
Quarter: 2013Q2

REPORT INFORMATION
  Report Type: Report from Study
  Country: DE (occurrence: DE)
  Receive Date: 20130605
  Receipt Date: 20130605
  Transmission Date: 20140414
  Serious: Yes (Death, Hospitalization)
  Sender: FDA-Public Use
  Company Number: DE-INCYTE CORPORATION-2012IN001155

PATIENT
  Age: 73 Year
  Sex: Male

DRUGS (2)
  1. INC424 [Suspect]
     Indication: MYELOFIBROSIS
     Dosage: 30 MG, BID
     Route: 048
     Dates: start: 20120404, end: 20120621
  2. INC424 [Suspect]
     Dosage: 10 MG, BID
     Route: 048
     Dates: start: 20120623

REACTIONS (11)
  - Withdrawal syndrome [Not Recovered/Not Resolved]
  - Respiratory failure [None]
  - Systemic inflammatory response syndrome [None]
  - Acute myocardial infarction [None]
  - Renal failure [None]
  - General physical health deterioration [None]
  - Abdominal pain [Not Recovered/Not Resolved]
  - Sepsis [Fatal]
  - Multi-organ failure [Fatal]
  - Splenic rupture [Not Recovered/Not Resolved]
  - Staphylococcal infection [None]
